FAERS Safety Report 14289336 (Version 1)
Quarter: 2017Q4

REPORT INFORMATION
  Report Type: Spontaneous
  Country: US (occurrence: US)
  Receive Date: 20171214
  Receipt Date: 20171214
  Transmission Date: 20180321
  Serious: Yes (Hospitalization, Other)
  Sender: FDA-Public Use
  Company Number: US-NOVOPROD-576678

PATIENT
  Age: 63 Year
  Sex: Female
  Weight: 72.56 kg

DRUGS (2)
  1. NOVOLOG [Suspect]
     Active Substance: INSULIN ASPART
     Indication: TYPE 2 DIABETES MELLITUS
     Dosage: 4 U, TID BEFORE MEALS
     Route: 058
     Dates: start: 2016
  2. NOVOLOG [Suspect]
     Active Substance: INSULIN ASPART
     Dosage: 10 U, SINGLE
     Route: 058
     Dates: start: 20171206, end: 20171206

REACTIONS (13)
  - Feeling drunk [Unknown]
  - Blood pressure increased [Recovered/Resolved]
  - Nephrolithiasis [Not Recovered/Not Resolved]
  - Blood glucose increased [Unknown]
  - Memory impairment [Unknown]
  - Blood pressure increased [Unknown]
  - Blood pressure increased [Recovered/Resolved]
  - Condition aggravated [Unknown]
  - Blood glucose increased [Recovered/Resolved]
  - Nephrolithiasis [Recovered/Resolved]
  - Dyskinesia [Unknown]
  - Blood glucose increased [Recovered/Resolved]
  - Hypersensitivity [Unknown]

NARRATIVE: CASE EVENT DATE: 201711
